FAERS Safety Report 17065894 (Version 1)
Quarter: 2019Q4

REPORT INFORMATION
  Report Type: Spontaneous
  Country: US (occurrence: US)
  Receive Date: 20191122
  Receipt Date: 20191122
  Transmission Date: 20200122
  Serious: No
  Sender: FDA-Public Use
  Company Number: US-PERRIGO-19US002505

PATIENT
  Age: 83 Year
  Sex: Male
  Weight: 62.59 kg

DRUGS (2)
  1. POLYETHYLENE GLYCOL 3350. [Suspect]
     Active Substance: POLYETHYLENE GLYCOL 3350
     Indication: CONSTIPATION
     Dosage: 8.5 TO 11.3 G, NIGHTLY
     Route: 048
     Dates: start: 20190131, end: 20190220
  2. METAMUCIL [Concomitant]
     Active Substance: PLANTAGO SEED
     Indication: SUPPLEMENTATION THERAPY
     Dosage: 5 ML, TID
     Route: 065
     Dates: start: 201902

REACTIONS (3)
  - Haematochezia [Not Recovered/Not Resolved]
  - Incorrect product administration duration [Recovered/Resolved]
  - Underdose [Recovered/Resolved]

NARRATIVE: CASE EVENT DATE: 20190131
